FAERS Safety Report 18120090 (Version 1)
Quarter: 2020Q3

REPORT INFORMATION
  Report Type: Spontaneous
  Country: US (occurrence: US)
  Receive Date: 20200806
  Receipt Date: 20200806
  Transmission Date: 20201103
  Serious: No
  Sender: FDA-Public Use
  Company Number: NVSC2020US214683

PATIENT
  Age: 18 Year
  Sex: Male
  Weight: 80 kg

DRUGS (4)
  1. HIDROXIUREA [Suspect]
     Active Substance: HYDROXYUREA
     Indication: PRODUCT USED FOR UNKNOWN INDICATION
     Dosage: UNK
     Route: 065
  2. HIDROXIUREA [Suspect]
     Active Substance: HYDROXYUREA
     Dosage: 10 MG/KG, UNKNOWN (50 PERCENT)
     Route: 065
     Dates: start: 20200605
  3. ADAKVEO [Suspect]
     Active Substance: CRIZANLIZUMAB-TMCA
     Indication: SICKLE CELL ANAEMIA
     Dosage: 400 MG, QMO
     Route: 042
     Dates: start: 20200312
  4. ADAKVEO [Suspect]
     Active Substance: CRIZANLIZUMAB-TMCA
     Dosage: 400 MG, QMO (SIXTH DOSE)
     Route: 042
     Dates: start: 20200723

REACTIONS (1)
  - Tremor [Recovered/Resolved]

NARRATIVE: CASE EVENT DATE: 20200715
